FAERS Safety Report 24602940 (Version 1)
Quarter: 2024Q4

REPORT INFORMATION
  Report Type: Spontaneous
  Country: CH (occurrence: CH)
  Receive Date: 20241111
  Receipt Date: 20241111
  Transmission Date: 20250114
  Serious: Yes (Hospitalization, Other)
  Sender: SANOFI AVENTIS
  Company Number: None

PATIENT
  Age: 78 Year
  Sex: Male

DRUGS (6)
  1. ZOLPIDEM TARTRATE [Suspect]
     Active Substance: ZOLPIDEM TARTRATE
     Dosage: 12.5 MG, QD, IN THE EVENING (12.5 MG 1X/DAY MAX, BUT THE PATIENT TOOK A HIGHER DOSE (CURRENT DOSE UN
     Dates: end: 20240818
  2. TRAZODONE HYDROCHLORIDE [Suspect]
     Active Substance: TRAZODONE HYDROCHLORIDE
     Dosage: 150 MG, QD
     Dates: end: 20240728
  3. TRAZODONE HYDROCHLORIDE [Suspect]
     Active Substance: TRAZODONE HYDROCHLORIDE
     Dosage: 300 MG, QD
     Dates: start: 20240729, end: 20240819
  4. OXAZEPAM [Suspect]
     Active Substance: OXAZEPAM
     Dosage: 7.5 MG, QID (BUT THE PATIENT TOOK A HIGHER DOSE (CURRENT DOSE UNKNOWN))
  5. MELATONIN [Suspect]
     Active Substance: MELATONIN
     Dosage: 2 MG, QD (EVENING)
  6. DAFALGAN [Concomitant]
     Active Substance: ACETAMINOPHEN
     Dosage: 1 G, QID

REACTIONS (2)
  - Inappropriate antidiuretic hormone secretion [Recovering/Resolving]
  - Hyponatraemia [Recovering/Resolving]

NARRATIVE: CASE EVENT DATE: 20240818
